FAERS Safety Report 22298747 (Version 1)
Quarter: 2023Q2

REPORT INFORMATION
  Report Type: Report from Study
  Country: US (occurrence: US)
  Receive Date: 20230509
  Receipt Date: 20230509
  Transmission Date: 20230722
  Serious: Yes (Other)
  Sender: FDA-Public Use
  Company Number: US-ABBVIE-4756879

PATIENT
  Age: 62 Year
  Sex: Female
  Weight: 86.182 kg

DRUGS (1)
  1. HUMIRA [Suspect]
     Active Substance: ADALIMUMAB
     Indication: Crohn^s disease
     Dosage: FORM STRENGTH: 40 MG?CITRATE FREE
     Route: 058
     Dates: start: 20230330

REACTIONS (5)
  - Faecal volume increased [Recovered/Resolved]
  - Lumbar spinal stenosis [Unknown]
  - Headache [Recovered/Resolved]
  - Scoliosis [Unknown]
  - Pruritus [Unknown]

NARRATIVE: CASE EVENT DATE: 20230414
